FAERS Safety Report 5591404-2 (Version None)
Quarter: 2008Q1

REPORT INFORMATION
  Report Type: 
  Country: None (occurrence: None)
  Receive Date: 20080115
  Receipt Date: 20080111
  Transmission Date: 20080703
  Serious: Yes (Hospitalization)
  Sender: FDA-Public Use
  Company Number: SE-ASTRAZENECA-2008SE00206

PATIENT
  Age: 28130 Day
  Sex: Female

DRUGS (19)
  1. ATACAND [Suspect]
     Indication: HYPERTENSION
     Route: 048
     Dates: end: 20070831
  2. OPTINATE [Suspect]
     Dates: end: 20070831
  3. CIPRALEX [Concomitant]
  4. SPIRIVA [Concomitant]
  5. ABILIFY [Concomitant]
  6. LYRICA [Concomitant]
  7. ACETYLCYSTEIN ALTERNOVA [Concomitant]
  8. ZOPICLON [Concomitant]
  9. FOLACIN [Concomitant]
  10. ACETAMINOPHEN [Concomitant]
  11. PROPAVAN [Concomitant]
  12. BEHEPAN [Concomitant]
  13. STESOLID [Concomitant]
  14. LAXOBERAL [Concomitant]
  15. PEVARYL [Concomitant]
  16. LASIX [Concomitant]
  17. TROMBYL [Concomitant]
  18. DOLCONTIN [Concomitant]
  19. OCULAC [Concomitant]

REACTIONS (2)
  - BLOOD CREATININE INCREASED [None]
  - HYPOCALCAEMIA [None]
